FAERS Safety Report 4841810-6 (Version None)
Quarter: 2005Q4

REPORT INFORMATION
  Report Type: 
  Country: None (occurrence: None)
  Receive Date: 20051130
  Receipt Date: 20051118
  Transmission Date: 20060501
  Serious: Yes (Hospitalization)
  Sender: FDA-Public Use
  Company Number: PHBS2005IT17108

PATIENT
  Age: 57 Year
  Sex: Female

DRUGS (5)
  1. CYCLOSPORINE [Suspect]
     Indication: RENAL TRANSPLANT
  2. MYCOPHENOLATE MOFETIL [Suspect]
     Indication: RENAL TRANSPLANT
  3. CORTICOSTEROIDS [Suspect]
     Indication: RENAL TRANSPLANT
  4. BASILIXIMAB [Suspect]
     Indication: RENAL TRANSPLANT
  5. METHYLPREDNISOLONE [Suspect]
     Dosage: BOLUS THERAPY

REACTIONS (19)
  - ABDOMINAL PAIN [None]
  - ANURIA [None]
  - COLOSTOMY [None]
  - COMPLICATIONS OF TRANSPLANTED KIDNEY [None]
  - CYTOMEGALOVIRUS INFECTION [None]
  - CYTOMEGALOVIRUS TEST POSITIVE [None]
  - GRAFT COMPLICATION [None]
  - HAEMODIALYSIS [None]
  - HAEMOGLOBIN DECREASED [None]
  - KIDNEY TRANSPLANT REJECTION [None]
  - LAPAROTOMY [None]
  - LARGE INTESTINE PERFORATION [None]
  - NEPHRECTOMY [None]
  - NORMOCHROMIC NORMOCYTIC ANAEMIA [None]
  - PERITONITIS [None]
  - PLATELET COUNT DECREASED [None]
  - PNEUMOPERITONEUM [None]
  - PYREXIA [None]
  - VOMITING [None]
